FAERS Safety Report 15588993 (Version 2)
Quarter: 2018Q4

REPORT INFORMATION
  Report Type: Report from Study
  Country: None (occurrence: TW)
  Receive Date: 20181106
  Receipt Date: 20181125
  Transmission Date: 20190205
  Serious: Yes (Hospitalization)
  Sender: FDA-Public Use
  Company Number: TW-ABBVIE-18K-153-2539375-00

PATIENT
  Age: 52 Year
  Sex: Male
  Weight: 60 kg

DRUGS (6)
  1. MIYARISAN BM [Concomitant]
     Indication: CROHN^S DISEASE
     Route: 048
     Dates: start: 20170320
  2. TAKEPRON [Concomitant]
     Active Substance: LANSOPRAZOLE
     Indication: CROHN^S DISEASE
     Dosage: BEFORE BREAKFAST
     Route: 048
     Dates: start: 20180716
  3. PREDNISOLONE. [Concomitant]
     Active Substance: PREDNISOLONE
     Indication: CROHN^S DISEASE
     Route: 048
     Dates: start: 20160111
  4. VIREAD [Concomitant]
     Active Substance: TENOFOVIR DISOPROXIL FUMARATE
     Indication: VIRAL HEPATITIS CARRIER
     Route: 048
     Dates: start: 20160428
  5. HUMIRA [Suspect]
     Active Substance: ADALIMUMAB
     Indication: CROHN^S DISEASE
     Route: 058
     Dates: start: 20141127, end: 20180301
  6. HUMIRA [Suspect]
     Active Substance: ADALIMUMAB
     Indication: CROHN^S DISEASE
     Route: 058
     Dates: start: 20180301, end: 20181018

REACTIONS (5)
  - Hypoaesthesia [Recovered/Resolved]
  - Infarction [Recovered/Resolved]
  - Joint range of motion decreased [Recovered/Resolved]
  - Asthenia [Recovered/Resolved]
  - Dizziness [Recovered/Resolved]

NARRATIVE: CASE EVENT DATE: 20181026
